FAERS Safety Report 6338558-8 (Version None)
Quarter: 2009Q3

REPORT INFORMATION
  Report Type: 
  Country: None (occurrence: None)
  Receive Date: 20090901
  Receipt Date: 20090819
  Transmission Date: 20100115
  Serious: No
  Sender: FDA-Public Use
  Company Number: 006723

PATIENT
  Age: 63 Year
  Sex: Female
  Weight: 63 kg

DRUGS (9)
  1. PLETAL [Suspect]
     Indication: PERIPHERAL ARTERIAL OCCLUSIVE DISEASE
     Dosage: 100 MG, ORAL
     Route: 048
     Dates: start: 20090206, end: 20090417
  2. ASPIRIN [Concomitant]
  3. LISINOPRIL [Concomitant]
  4. VERAPAMIL [Concomitant]
  5. OMEPRAZOLE [Concomitant]
  6. TRAMADOL HCL [Concomitant]
  7. NOVALGIN SCH (METAMIZOLE SODIUM MONOHYDRATE) [Concomitant]
  8. SIMVASTATIN [Concomitant]
  9. ZOPICLONE (ZOPICLONE) [Concomitant]

REACTIONS (1)
  - ENTEROCOLITIS HAEMORRHAGIC [None]
